FAERS Safety Report 6494294-9 (Version None)
Quarter: 2009Q4

REPORT INFORMATION
  Report Type: 
  Country: None (occurrence: None)
  Receive Date: 20091214
  Receipt Date: 20090320
  Transmission Date: 20100525
  Serious: No
  Sender: FDA-Public Use
  Company Number: US-BRISTOL-MYERS SQUIBB COMPANY-14494298

PATIENT
  Age: 82 Year
  Sex: Male
  Weight: 63 kg

DRUGS (2)
  1. ABILIFY [Suspect]
     Indication: DEPRESSION
     Dosage: TOOK 60 TABS
     Dates: start: 20090101
  2. LIPITOR [Concomitant]

REACTIONS (6)
  - ATAXIA [None]
  - CONFUSIONAL STATE [None]
  - FEELING DRUNK [None]
  - GAIT DISTURBANCE [None]
  - MEMORY IMPAIRMENT [None]
  - VISION BLURRED [None]
